FAERS Safety Report 4466802-0 (Version None)
Quarter: 2004Q3

REPORT INFORMATION
  Report Type: 
  Country: None (occurrence: None)
  Receive Date: 20040930
  Receipt Date: 20040920
  Transmission Date: 20050211
  Serious: No
  Sender: FDA-Public Use
  Company Number: US-2004-025985

PATIENT
  Age: 30 Year
  Sex: Female
  Weight: 78.5 kg

DRUGS (5)
  1. BETASERON [Suspect]
     Indication: MULTIPLE SCLEROSIS
     Dosage: 8 MIU, EVERY 2D, SUBCUTANEOUS
     Route: 058
     Dates: start: 20040204
  2. PROVIGIL [Concomitant]
  3. WELLBUTRIN [Concomitant]
  4. BENADRYL   ACHE  (MENTHOL, AMMONIUM CHLORIDE, DIPHENHYDRAMINE HYDROCHL [Concomitant]
  5. IBUPROFEN [Concomitant]

REACTIONS (6)
  - ABDOMINAL PAIN UPPER [None]
  - CONDITION AGGRAVATED [None]
  - INFLUENZA LIKE ILLNESS [None]
  - MULTIPLE SCLEROSIS [None]
  - PAIN [None]
  - THYROID GLAND CANCER [None]
